FAERS Safety Report 7230870-3 (Version None)
Quarter: 2011Q1

REPORT INFORMATION
  Report Type: 
  Country: None (occurrence: None)
  Receive Date: 20110118
  Receipt Date: 20110112
  Transmission Date: 20110831
  Serious: Yes (Hospitalization)
  Sender: FDA-Public Use
  Company Number: JP-PFIZER INC-2010139116

PATIENT
  Age: 64 Year
  Sex: Female
  Weight: 53.1 kg

DRUGS (5)
  1. LIVALO [Concomitant]
     Indication: HYPERLIPIDAEMIA
     Dosage: 2 MG, 1X/DAY
     Route: 048
     Dates: start: 20000101, end: 20101102
  2. SUNITINIB MALATE [Suspect]
     Indication: PANCREATIC NEUROENDOCRINE TUMOUR
     Dosage: 37.5 MG, 1X/DAY
     Route: 048
     Dates: start: 20101019, end: 20101102
  3. ALOSENN [Concomitant]
     Indication: CONSTIPATION
     Dosage: 0.5 G
     Route: 048
     Dates: start: 19900101, end: 20101102
  4. LOXONIN [Concomitant]
     Indication: PAIN
     Dosage: 60 MG
     Route: 048
     Dates: start: 20080101, end: 20101102
  5. GASTER [Concomitant]
     Indication: GASTRITIS PROPHYLAXIS
     Dosage: 20 MG, 2X/DAY
     Route: 048
     Dates: start: 20080101, end: 20101102

REACTIONS (1)
  - CHOLECYSTITIS ACUTE [None]
